FAERS Safety Report 9391322 (Version 1)
Quarter: 2013Q3

REPORT INFORMATION
  Report Type: Spontaneous
  Country: GB (occurrence: GB)
  Receive Date: 20130709
  Receipt Date: 20130709
  Transmission Date: 20140515
  Serious: Yes (Other)
  Sender: FDA-Public Use
  Company Number: GB-ASTRAZENECA-2013SE49501

PATIENT
  Age: 36 Year
  Sex: Female
  Weight: 82 kg

DRUGS (10)
  1. MARCAIN [Suspect]
     Indication: ARTHRALGIA
     Route: 014
     Dates: start: 20130525, end: 20130528
  2. MARCAIN [Suspect]
     Indication: PSORIATIC ARTHROPATHY
     Route: 014
     Dates: start: 20130525, end: 20130528
  3. MARCAIN [Suspect]
     Indication: MUSCULOSKELETAL STIFFNESS
     Route: 014
     Dates: start: 20130525, end: 20130528
  4. ASPIRIN [Concomitant]
  5. CITALOPRAM [Concomitant]
  6. CO-CODAMOL [Concomitant]
  7. KENALOG [Concomitant]
     Indication: PSORIATIC ARTHROPATHY
     Route: 014
  8. KENALOG [Concomitant]
     Indication: PSORIATIC ARTHROPATHY
     Route: 014
  9. OMEPRAZOLE [Concomitant]
  10. PIRITON [Concomitant]

REACTIONS (5)
  - Exposure during pregnancy [Unknown]
  - Eye swelling [Recovered/Resolved]
  - Swelling face [Recovered/Resolved]
  - Flushing [Recovered/Resolved]
  - Foetal hypokinesia [Unknown]
